FAERS Safety Report 8246064-9 (Version None)
Quarter: 2012Q1

REPORT INFORMATION
  Report Type: 
  Country: None (occurrence: None)
  Receive Date: 20120330
  Receipt Date: 20120321
  Transmission Date: 20120608
  Serious: Yes (Death, Other)
  Sender: FDA-Public Use
  Company Number: JP-CELGENEUS-087-50794-12033022

PATIENT
  Age: 65 Year
  Sex: Female
  Weight: 49 kg

DRUGS (21)
  1. VIDAZA [Suspect]
     Indication: MYELODYSPLASTIC SYNDROME
     Dosage: 75 MILLIGRAM/SQ. METER
     Route: 058
     Dates: start: 20111024, end: 20111030
  2. METFORMIN HCL [Concomitant]
     Route: 065
     Dates: start: 20111024, end: 20111108
  3. MAGMITT [Concomitant]
     Route: 065
     Dates: start: 20111024
  4. LENDORMIN D [Concomitant]
     Route: 065
     Dates: start: 20111024
  5. DORAL [Concomitant]
     Route: 065
     Dates: start: 20111028, end: 20111107
  6. OXYCONTIN [Concomitant]
     Route: 065
     Dates: start: 20111031, end: 20111107
  7. VIDAZA [Suspect]
     Dosage: 75 MILLIGRAM/SQ. METER
     Route: 058
     Dates: start: 20120131, end: 20120206
  8. VALTREX [Concomitant]
     Route: 065
     Dates: start: 20111024, end: 20111108
  9. LEVOFLOXACIN [Concomitant]
     Route: 065
     Dates: start: 20111022, end: 20111108
  10. ARGAMATE [Concomitant]
     Route: 065
     Dates: start: 20111104, end: 20111107
  11. RAMELTEON [Concomitant]
     Route: 065
     Dates: start: 20111121, end: 20111127
  12. VIDAZA [Suspect]
     Dosage: 75 MILLIGRAM/SQ. METER
     Route: 058
     Dates: start: 20111121, end: 20111127
  13. RAMELTEON [Concomitant]
     Route: 065
     Dates: start: 20111024, end: 20111027
  14. CARNACULIN [Concomitant]
     Route: 065
     Dates: start: 20111024, end: 20111108
  15. DIFLUCAN [Concomitant]
     Route: 065
     Dates: start: 20111022, end: 20111108
  16. OXINORM [Concomitant]
     Route: 065
     Dates: start: 20111028, end: 20111107
  17. SHINLUCKSODIUM PICOSULFATE HYDRATE [Concomitant]
     Route: 065
     Dates: start: 20111108
  18. VIDAZA [Suspect]
     Dosage: 75 MILLIGRAM/SQ. METER
     Route: 058
     Dates: start: 20111219, end: 20111225
  19. ALLOPURINOL [Concomitant]
     Route: 065
     Dates: start: 20111024, end: 20111027
  20. NITRAZEPAM [Concomitant]
     Route: 065
     Dates: start: 20111026, end: 20111027
  21. ZOLPIDEM [Concomitant]
     Route: 065
     Dates: start: 20111027, end: 20111107

REACTIONS (6)
  - PERIPHERAL NERVE PALSY [None]
  - FEBRILE NEUTROPENIA [None]
  - CANCER PAIN [None]
  - HAEMORRHAGE [None]
  - DEVICE RELATED INFECTION [None]
  - HYPOCALCAEMIA [None]
